FAERS Safety Report 14346885 (Version 1)
Quarter: 2018Q1

REPORT INFORMATION
  Report Type: Spontaneous
  Country: US (occurrence: US)
  Receive Date: 20180103
  Receipt Date: 20180103
  Transmission Date: 20180509
  Serious: No
  Sender: FDA-Public Use
  Company Number: US-PFIZER INC-2017556076

PATIENT
  Age: 50 Year
  Sex: Female
  Weight: 68.4 kg

DRUGS (2)
  1. CHANTIX [Suspect]
     Active Substance: VARENICLINE TARTRATE
     Dosage: 2 MG, 1X/DAY
     Route: 048
     Dates: start: 2017, end: 201712
  2. CHANTIX [Suspect]
     Active Substance: VARENICLINE TARTRATE
     Indication: SMOKING CESSATION THERAPY
     Dosage: 1 MG, 1X/DAY
     Route: 048
     Dates: start: 201711, end: 2017

REACTIONS (1)
  - Sleep disorder [Recovered/Resolved]

NARRATIVE: CASE EVENT DATE: 201711
